FAERS Safety Report 16170286 (Version 2)
Quarter: 2020Q3

REPORT INFORMATION
  Report Type: Report from Study
  Country: US (occurrence: US)
  Receive Date: 20190408
  Receipt Date: 20190610
  Transmission Date: 20201105
  Serious: Yes (Hospitalization)
  Sender: FDA-Public Use
  Company Number: US-JNJFOC-20190409904

PATIENT
  Age: 61 Year
  Sex: Male
  Weight: 140 kg

DRUGS (2)
  1. ESKETAMINE [Suspect]
     Active Substance: ESKETAMINE
     Route: 045
  2. ESKETAMINE [Suspect]
     Active Substance: ESKETAMINE
     Indication: DEPRESSION
     Route: 045
     Dates: start: 20170524

REACTIONS (1)
  - Bronchitis chronic [Recovered/Resolved]

NARRATIVE: CASE EVENT DATE: 20190327
